FAERS Safety Report 22048867 (Version 1)
Quarter: 2023Q1

REPORT INFORMATION
  Report Type: Report from Study
  Country: CA (occurrence: None)
  Receive Date: 20230301
  Receipt Date: 20230301
  Transmission Date: 20230417
  Serious: Yes (Death, Other)
  Sender: FDA-Public Use
  Company Number: 2023A048592

PATIENT
  Sex: Female

DRUGS (8)
  1. FASENRA [Suspect]
     Active Substance: BENRALIZUMAB
     Indication: Asthma
     Route: 058
     Dates: start: 20210322, end: 20220715
  2. AZITHROMYCINE DIE [Concomitant]
  3. VENTOLIN + NEBULE [Concomitant]
  4. ATROVEN [Concomitant]
     Dosage: 20UG 4 INH PRN
  5. ALVESCO [Concomitant]
     Active Substance: CICLESONIDE
     Dosage: 200UG 2 INH
  6. SPIRIVA RESPIMAT [Concomitant]
     Active Substance: TIOTROPIUM BROMIDE
     Dosage: 18UG 2 INH DIE
  7. MONTELIKAST [Concomitant]
     Dosage: 1 CO/DAY
  8. BREO ELLIPTA [Concomitant]
     Active Substance: FLUTICASONE FUROATE\VILANTEROL TRIFENATATE
     Dosage: 200/25UG 1INH DIE

REACTIONS (1)
  - Death [Fatal]
